FAERS Safety Report 14501680 (Version 1)
Quarter: 2018Q1

REPORT INFORMATION
  Report Type: Spontaneous
  Country: US (occurrence: US)
  Receive Date: 20180206
  Receipt Date: 20180206
  Transmission Date: 20180509
  Serious: Yes (Hospitalization, Disabling, Other)
  Sender: FDA-Public Use
  Company Number: None

PATIENT
  Age: 38 Year
  Sex: Female
  Weight: 58.5 kg

DRUGS (5)
  1. NASACORT [Concomitant]
     Active Substance: TRIAMCINOLONE ACETONIDE
  2. ZYRTEC [Concomitant]
     Active Substance: CETIRIZINE HYDROCHLORIDE
  3. MULTIVITAMIN [Concomitant]
     Active Substance: VITAMINS
  4. LUPRON [Suspect]
     Active Substance: LEUPROLIDE ACETATE
     Indication: UTERINE LEIOMYOMA
     Dosage: ?          QUANTITY:1 INJECTION(S);OTHER FREQUENCY:ONE TIME SHOT;OTHER ROUTE:INJECTED IN HIP?
     Dates: start: 20170803, end: 20170803
  5. QVAR [Concomitant]
     Active Substance: BECLOMETHASONE DIPROPIONATE

REACTIONS (15)
  - Muscle atrophy [None]
  - Muscular weakness [None]
  - Arthralgia [None]
  - Arthritis [None]
  - Vomiting [None]
  - Nausea [None]
  - Fatigue [None]
  - Paraesthesia [None]
  - Dry eye [None]
  - Dry mouth [None]
  - Headache [None]
  - Back pain [None]
  - Alopecia [None]
  - Intervertebral disc degeneration [None]
  - Chondropathy [None]

NARRATIVE: CASE EVENT DATE: 20170803
